FAERS Safety Report 4794359-3 (Version None)
Quarter: 2005Q4

REPORT INFORMATION
  Report Type: 
  Country: None (occurrence: None)
  Receive Date: 20051007
  Receipt Date: 20051007
  Transmission Date: 20060501
  Serious: Yes (Life-Threatening, Hospitalization)
  Sender: FDA-Public Use
  Company Number: None

PATIENT
  Age: 78 Year
  Sex: Female
  Weight: 68.0396 kg

DRUGS (2)
  1. DEPODUR [Suspect]
     Indication: KNEE ARTHROPLASTY
     Dosage: 15 MG ONCE EPIDURAL
     Route: 008
     Dates: start: 20050913, end: 20050913
  2. DEPODUR [Suspect]
     Indication: PAIN PROPHYLAXIS
     Dosage: 15 MG ONCE EPIDURAL
     Route: 008
     Dates: start: 20050913, end: 20050913

REACTIONS (2)
  - DEPRESSED LEVEL OF CONSCIOUSNESS [None]
  - RESPIRATORY RATE DECREASED [None]
